FAERS Safety Report 5093614-X (Version None)
Quarter: 2006Q3

REPORT INFORMATION
  Report Type: 
  Country: None (occurrence: None)
  Receive Date: 20060829
  Receipt Date: 20060824
  Transmission Date: 20061208
  Serious: No
  Sender: FDA-Public Use
  Company Number: S06-USA-03415-01

PATIENT
  Age: 30 Year
  Sex: Female

DRUGS (10)
  1. LEXAPRO [Suspect]
     Indication: ANXIETY
     Dosage: 60 MG QD PO
     Route: 048
     Dates: end: 20060820
  2. LEXAPRO [Suspect]
     Indication: DEPRESSION
     Dosage: 60 MG QD PO
     Route: 048
     Dates: end: 20060820
  3. LEXAPRO [Suspect]
     Indication: PAIN
     Dosage: 60 MG QD PO
     Route: 048
     Dates: end: 20060820
  4. LEXAPRO [Suspect]
     Indication: ANXIETY
     Dosage: 20 MG QD PO
     Route: 048
     Dates: start: 20060823
  5. LEXAPRO [Suspect]
     Indication: DEPRESSION
     Dosage: 20 MG QD PO
     Route: 048
     Dates: start: 20060823
  6. LEXAPRO [Suspect]
     Indication: PAIN
     Dosage: 20 MG QD PO
     Route: 048
     Dates: start: 20060823
  7. TRILEPTAL [Concomitant]
  8. SEROQUEL [Concomitant]
  9. FENTANYL [Concomitant]
  10. ORAL CONTRACEPTIVES (NOS) [Concomitant]

REACTIONS (2)
  - DRUG WITHDRAWAL SYNDROME [None]
  - HYPONATRAEMIA [None]
